FAERS Safety Report 16544444 (Version 5)
Quarter: 2019Q4

REPORT INFORMATION
  Report Type: Spontaneous
  Country: US (occurrence: US)
  Receive Date: 20190709
  Receipt Date: 20191120
  Transmission Date: 20200122
  Serious: No
  Sender: FDA-Public Use
  Company Number: US-PFIZER INC-2019289587

PATIENT
  Age: 56 Year
  Sex: Female
  Weight: 90.7 kg

DRUGS (2)
  1. LYRICA [Suspect]
     Active Substance: PREGABALIN
     Indication: FIBROMYALGIA
     Dosage: 300 MG, 2X/DAY (MORNING AND NIGHT)
     Route: 048
  2. LYRICA [Suspect]
     Active Substance: PREGABALIN
     Indication: NEURALGIA
     Dosage: 1 DF, 1X/DAY (1 LYRICA A DAY)

REACTIONS (8)
  - Malaise [Not Recovered/Not Resolved]
  - Nausea [Unknown]
  - Depressed mood [Unknown]
  - Withdrawal syndrome [Unknown]
  - Confusional state [Unknown]
  - Tremor [Unknown]
  - Pain [Unknown]
  - Anxiety [Unknown]
